FAERS Safety Report 9990242 (Version 1)
Quarter: 2014Q1

REPORT INFORMATION
  Report Type: Report from Study
  Country: US (occurrence: US)
  Receive Date: 20140310
  Receipt Date: 20140310
  Transmission Date: 20141002
  Serious: No
  Sender: FDA-Public Use
  Company Number: US-ABBVIE-13P-163-1132974-00

PATIENT
  Age: 37 Year
  Sex: Female

DRUGS (4)
  1. HUMIRA [Suspect]
     Indication: ANKYLOSING SPONDYLITIS
     Dosage: INITIAL DOSE
     Dates: start: 20130731, end: 20130731
  2. HUMIRA [Suspect]
  3. PREDNISONE [Concomitant]
     Indication: ANKYLOSING SPONDYLITIS
     Dosage: TAPERING DOSE
     Dates: start: 20130731
  4. PREDNISONE [Concomitant]
     Dosage: 20 MG DAILY

REACTIONS (1)
  - Muscle spasms [Not Recovered/Not Resolved]
